FAERS Safety Report 8255472-1 (Version None)
Quarter: 2012Q1

REPORT INFORMATION
  Report Type: 
  Country: None (occurrence: None)
  Receive Date: 20120329
  Receipt Date: 20120315
  Transmission Date: 20120608
  Serious: Yes (Other)
  Sender: FDA-Public Use
  Company Number: 1231505

PATIENT
  Age: 45 Year
  Sex: Male

DRUGS (9)
  1. HYDROCORTISONE [Concomitant]
  2. RANITIDINE [Concomitant]
  3. (DEXAMETHASONE) [Concomitant]
  4. IRINOTECAN HYDROCHLORIDE [Suspect]
     Indication: RECTAL CANCER
     Dosage: 270 MG MILLIGRAM(S), INTRAVENOUS DRIP, 270 MG MILLIGRAM(S), INTRAVENOUS DRIP
     Route: 041
     Dates: start: 20120215, end: 20120215
  5. IRINOTECAN HYDROCHLORIDE [Suspect]
     Indication: RECTAL CANCER
     Dosage: 270 MG MILLIGRAM(S), INTRAVENOUS DRIP, 270 MG MILLIGRAM(S), INTRAVENOUS DRIP
     Route: 041
     Dates: start: 20120306
  6. ATROPINE [Concomitant]
  7. ONDANSETRON [Concomitant]
  8. (CLEMASTINE) [Concomitant]
  9. (CETUXIMAB) [Concomitant]

REACTIONS (4)
  - PHARYNGEAL OEDEMA [None]
  - MUSCULOSKELETAL STIFFNESS [None]
  - ABDOMINAL PAIN [None]
  - ARTHRALGIA [None]
